FAERS Safety Report 7901650-8 (Version None)
Quarter: 2011Q4

REPORT INFORMATION
  Report Type: 
  Country: None (occurrence: None)
  Receive Date: 20111108
  Receipt Date: 20111103
  Transmission Date: 20120403
  Serious: Yes (Other)
  Sender: FDA-Public Use
  Company Number: DE-ASTRAZENECA-2011SE66343

PATIENT
  Sex: Male
  Weight: 84 kg

DRUGS (6)
  1. ASPIRIN [Suspect]
     Route: 048
  2. RAMIPRIL [Concomitant]
     Route: 048
  3. BRILIQUE [Suspect]
     Indication: ACUTE MYOCARDIAL INFARCTION
     Route: 048
     Dates: start: 20110715, end: 20111004
  4. METOPROLOL [Concomitant]
     Route: 048
  5. EZETIMIBE [Concomitant]
     Dosage: 10/40 MG DAILY
     Route: 048
  6. INSPRA [Concomitant]
     Route: 048

REACTIONS (3)
  - ANAL HAEMORRHAGE [None]
  - PSEUDOMEMBRANOUS COLITIS [None]
  - HAEMATOCHEZIA [None]
